FAERS Safety Report 7812241-1 (Version None)
Quarter: 2011Q4

REPORT INFORMATION
  Report Type: 
  Country: None (occurrence: None)
  Receive Date: 20111013
  Receipt Date: 20110930
  Transmission Date: 20120403
  Serious: Yes (Other)
  Sender: FDA-Public Use
  Company Number: US-BAYER-2011-082021

PATIENT
  Age: 20 Year
  Sex: Female

DRUGS (9)
  1. LO/OVRAL [Concomitant]
     Dosage: UNK
     Dates: start: 20071001
  2. YAZ [Suspect]
  3. IBUPROFEN [Concomitant]
     Indication: MUSCLE SPASMS
     Dosage: UNK UNK, PRN
  4. YAZ [Suspect]
     Indication: CYST
  5. TYLENOL-500 [Concomitant]
     Indication: MUSCLE SPASMS
     Dosage: UNK UNK, PRN
     Route: 048
  6. YAZ [Suspect]
     Indication: ACNE
     Dosage: UNK
     Dates: start: 20070601, end: 20071010
  7. YAZ [Suspect]
     Indication: PREMENSTRUAL SYNDROME
  8. IBUPROFEN [Concomitant]
     Indication: HEADACHE
  9. TYLENOL-500 [Concomitant]
     Indication: HEADACHE

REACTIONS (8)
  - CHOLECYSTITIS CHRONIC [None]
  - INJURY [None]
  - GALLBLADDER INJURY [None]
  - BILIARY DYSKINESIA [None]
  - MALAISE [None]
  - NAUSEA [None]
  - VOMITING [None]
  - PAIN [None]
